FAERS Safety Report 11335761 (Version 3)
Quarter: 2016Q1

REPORT INFORMATION
  Report Type: Spontaneous
  Country: US (occurrence: US)
  Receive Date: 20150804
  Receipt Date: 20160127
  Transmission Date: 20160525
  Serious: Yes (Other)
  Sender: FDA-Public Use
  Company Number: US-UCBSA-2015024254

PATIENT
  Age: 54 Year
  Sex: Male
  Weight: 62.59 kg

DRUGS (1)
  1. KEPPRA XR [Suspect]
     Active Substance: LEVETIRACETAM
     Indication: SEIZURE
     Dosage: 2 DF, 2X/DAY (BID)
     Route: 048
     Dates: start: 20141004

REACTIONS (3)
  - Intentional product misuse [Unknown]
  - Malaise [Not Recovered/Not Resolved]
  - Colon cancer stage III [Not Recovered/Not Resolved]

NARRATIVE: CASE EVENT DATE: 201403
